FAERS Safety Report 14673254 (Version 1)
Quarter: 2018Q1

REPORT INFORMATION
  Report Type: Report from Study
  Country: DE (occurrence: DE)
  Receive Date: 20180323
  Receipt Date: 20180323
  Transmission Date: 20180509
  Serious: Yes (Hospitalization)
  Sender: FDA-Public Use
  Company Number: DE-ROCHE-1976360

PATIENT
  Age: 65 Year
  Sex: Male
  Weight: 97 kg

DRUGS (9)
  1. OBINUTUZUMAB. [Suspect]
     Active Substance: OBINUTUZUMAB
     Indication: CHRONIC LYMPHOCYTIC LEUKAEMIA
     Dosage: LAST DOSE PRIOR TO SAE: 1000 MG ON 01/AUG/2017?100 MG DAY 1, 900 MG DAY 2, 1 G DAY8 AND 1 G ON DAY 1
     Route: 042
     Dates: start: 20170411
  2. IBRUTINIB [Suspect]
     Active Substance: IBRUTINIB
     Indication: CHRONIC LYMPHOCYTIC LEUKAEMIA
     Dosage: LAST DOSE PRIOR TO SAE: 420 MG ON 09/AUG/2017?CYCLE 2-6 (1000 MG) IBRUTINIB (TABLET):
     Route: 048
     Dates: start: 20170411
  3. COTRIM [Concomitant]
     Active Substance: SULFAMETHOXAZOLE\TRIMETHOPRIM
     Route: 048
     Dates: start: 20170405
  4. VENETOCLAX. [Suspect]
     Active Substance: VENETOCLAX
     Indication: CHRONIC LYMPHOCYTIC LEUKAEMIA
     Dosage: LAST DOSE PRIOR TO SAE: 400 MG ON 09/AUG/2017?FROM 16/MAY/2017 TO 30/MAY/2017, DOSAGE WAS INCREASED
     Route: 048
     Dates: start: 20170502
  5. ACYCLOVIR. [Concomitant]
     Active Substance: ACYCLOVIR
     Dosage: 3X15 MG/KG BODY WEIGHT
     Route: 048
     Dates: start: 20170425
  6. DEXAMETHASONE. [Concomitant]
     Active Substance: DEXAMETHASONE
  7. PRIVIGEN [Concomitant]
     Active Substance: HUMAN IMMUNOGLOBULIN G
  8. PREDNISOLONE. [Concomitant]
     Active Substance: PREDNISOLONE
     Dosage: MAINTENANCE THERAPY (5-20 MG/D)
     Route: 065
  9. UNACID (AMPICILLIN SODIUM, SULBACTAM SODIUM) [Concomitant]
     Active Substance: AMPICILLIN SODIUM\SULBACTAM SODIUM

REACTIONS (2)
  - Febrile infection [Recovered/Resolved]
  - Viral infection [Recovered/Resolved]

NARRATIVE: CASE EVENT DATE: 20170808
